FAERS Safety Report 5318791-4 (Version None)
Quarter: 2007Q2

REPORT INFORMATION
  Report Type: 
  Country: None (occurrence: None)
  Receive Date: 20070503
  Receipt Date: 20070420
  Transmission Date: 20071010
  Serious: Yes (Life-Threatening)
  Sender: FDA-Public Use
  Company Number: FSC_00108_2007

PATIENT
  Age: 77 Year
  Sex: Female

DRUGS (5)
  1. VERAPAMIL [Suspect]
     Indication: HYPERTENSION
     Dosage: (120 MG TID)
     Dates: start: 20030101, end: 20070323
  2. LOSARTAN POSTASSIUM [Concomitant]
  3. ATORVASTATIN CALCIUM [Concomitant]
  4. SPIRONOLACTONE [Concomitant]
  5. DOXAZOSIN MESYLATE [Concomitant]

REACTIONS (2)
  - ATRIOVENTRICULAR BLOCK COMPLETE [None]
  - HYPOTENSION [None]
